FAERS Safety Report 17510627 (Version 1)
Quarter: 2020Q1

REPORT INFORMATION
  Report Type: Report from Study
  Country: IN (occurrence: IN)
  Receive Date: 20200306
  Receipt Date: 20200306
  Transmission Date: 20200409
  Serious: Yes (Hospitalization)
  Sender: FDA-Public Use
  Company Number: IN-BIOGEN-2020BI00844535

PATIENT
  Age: 9 Month
  Sex: Female

DRUGS (2)
  1. SPINRAZA [Suspect]
     Active Substance: NUSINERSEN
     Indication: PRODUCT USED FOR UNKNOWN INDICATION
     Route: 065
  2. SPINRAZA [Suspect]
     Active Substance: NUSINERSEN
     Dosage: 4TH LOADING DOSE
     Route: 037
     Dates: start: 20200211

REACTIONS (3)
  - Pneumothorax [Not Recovered/Not Resolved]
  - Lung consolidation [Not Recovered/Not Resolved]
  - Nasopharyngitis [Not Recovered/Not Resolved]

NARRATIVE: CASE EVENT DATE: 20200221
